FAERS Safety Report 10235767 (Version 1)
Quarter: 2014Q2

REPORT INFORMATION
  Report Type: Spontaneous
  Country: IN (occurrence: None)
  Receive Date: 20140611
  Receipt Date: 20140611
  Transmission Date: 20141212
  Serious: Yes (Other)
  Sender: FDA-Public Use
  Company Number: IN-DEXPHARM-20140316

PATIENT
  Age: 58 Year
  Sex: Male

DRUGS (1)
  1. DICLOFENAC [Suspect]
     Indication: HEADACHE

REACTIONS (1)
  - Drug eruption [None]
